FAERS Safety Report 5965758-9 (Version None)
Quarter: 2008Q4

REPORT INFORMATION
  Report Type: 
  Country: None (occurrence: None)
  Receive Date: 20081125
  Receipt Date: 20081124
  Transmission Date: 20090506
  Serious: Yes (Other)
  Sender: FDA-Public Use
  Company Number: D0059585A

PATIENT
  Age: 20 Month
  Sex: Female

DRUGS (1)
  1. SULTANOL [Suspect]
     Route: 055

REACTIONS (2)
  - FATIGUE [None]
  - HALLUCINATION [None]
